FAERS Safety Report 11147670 (Version 1)
Quarter: 2015Q2

REPORT INFORMATION
  Report Type: Spontaneous
  Country: US (occurrence: None)
  Receive Date: 20150528
  Receipt Date: 20150528
  Transmission Date: 20150821
  Serious: Yes (Death, Life-Threatening, Hospitalization, Disabling)
  Sender: FDA-Public Use
  Company Number: None

PATIENT

DRUGS (8)
  1. ATENOLOL. [Concomitant]
     Active Substance: ATENOLOL
  2. DEPO-MEDROL [Suspect]
     Active Substance: METHYLPREDNISOLONE ACETATE
     Indication: OSTEOARTHRITIS
  3. LIPITOR [Concomitant]
     Active Substance: ATORVASTATIN CALCIUM
  4. COUMADIN [Concomitant]
     Active Substance: WARFARIN SODIUM
  5. LIDOCAINE. [Suspect]
     Active Substance: LIDOCAINE
     Indication: OSTEOARTHRITIS
  6. DILTIAZEM HCL ER [Concomitant]
  7. CLONIDINE HCL [Concomitant]
     Active Substance: CLONIDINE HYDROCHLORIDE
  8. PRILOSEC [Concomitant]
     Active Substance: OMEPRAZOLE MAGNESIUM

REACTIONS (10)
  - Streptococcus test positive [None]
  - Post procedural complication [None]
  - Pain [None]
  - Arthritis bacterial [None]
  - Staphylococcus test negative [None]
  - Drug level increased [None]
  - Arthritis infective [None]
  - Bacterial test positive [None]
  - Renal impairment [None]
  - Aspiration joint abnormal [None]

NARRATIVE: CASE EVENT DATE: 20140317
